FAERS Safety Report 4307917-7 (Version None)
Quarter: 2004Q1

REPORT INFORMATION
  Report Type: 
  Country: None (occurrence: None)
  Receive Date: 20040301
  Receipt Date: 20020718
  Transmission Date: 20041129
  Serious: No
  Sender: FDA-Public Use
  Company Number: US-BRISTOL-MYERS SQUIBB COMPANY-11958071

PATIENT
  Age: 35 Year
  Sex: Female
  Weight: 113 kg

DRUGS (4)
  1. GLUCOPHAGE [Suspect]
     Indication: POLYCYSTIC OVARIES
     Route: 048
     Dates: start: 19990101, end: 20020717
  2. PRENATAL VITAMINS [Concomitant]
  3. SYNTHROID [Concomitant]
  4. ASPIRIN [Concomitant]

REACTIONS (4)
  - NORMAL NEWBORN [None]
  - PREGNANCY [None]
  - WEIGHT DECREASED [None]
  - WEIGHT INCREASED [None]
